FAERS Safety Report 11705222 (Version 2)
Quarter: 2015Q4

REPORT INFORMATION
  Report Type: Spontaneous
  Country: US (occurrence: US)
  Receive Date: 20151106
  Receipt Date: 20151202
  Transmission Date: 20160304
  Serious: Yes (Hospitalization)
  Sender: FDA-Public Use
  Company Number: US-BEH-2015055448

PATIENT
  Age: 60 Year
  Sex: Male
  Weight: 154 kg

DRUGS (20)
  1. CYCLOBENZAPRINE [Concomitant]
     Active Substance: CYCLOBENZAPRINE
  2. ACETAMINOPHEN. [Concomitant]
     Active Substance: ACETAMINOPHEN
  3. NORMAL SALINE [Concomitant]
     Active Substance: SODIUM CHLORIDE
  4. IBUPROFEN. [Concomitant]
     Active Substance: IBUPROFEN
  5. GABAPENTIN. [Concomitant]
     Active Substance: GABAPENTIN
  6. HEPARIN [Concomitant]
     Active Substance: HEPARIN SODIUM
  7. SODIUM CHLORIDE. [Concomitant]
     Active Substance: SODIUM CHLORIDE
  8. JANUMET [Concomitant]
     Active Substance: METFORMIN HYDROCHLORIDE\SITAGLIPTIN PHOSPHATE
  9. MOTILIUM [Concomitant]
     Active Substance: DOMPERIDONE
  10. LEVEMIR [Concomitant]
     Active Substance: INSULIN DETEMIR
  11. SOLU-MEDROL [Concomitant]
     Active Substance: METHYLPREDNISOLONE SODIUM SUCCINATE
  12. EPIPEN [Concomitant]
     Active Substance: EPINEPHRINE
  13. CYMBALTA [Concomitant]
     Active Substance: DULOXETINE HYDROCHLORIDE
  14. LMX [Concomitant]
     Active Substance: LIDOCAINE
  15. AMOXICILLIN. [Concomitant]
     Active Substance: AMOXICILLIN
  16. PRIVIGEN [Suspect]
     Active Substance: HUMAN IMMUNOGLOBULIN G
     Indication: POLYNEUROPATHY
     Dosage: AS DIRECTED
     Route: 042
     Dates: start: 20151008
  17. HUMALOG [Concomitant]
     Active Substance: INSULIN LISPRO
  18. METOPROLOL SUCCINATE. [Concomitant]
     Active Substance: METOPROLOL SUCCINATE
  19. DIPHENHYDRAMINE. [Concomitant]
     Active Substance: DIPHENHYDRAMINE
  20. OXYCODONE [Concomitant]
     Active Substance: OXYCODONE

REACTIONS (2)
  - Muscular weakness [Recovered/Resolved]
  - Lower limb fracture [Recovered/Resolved]

NARRATIVE: CASE EVENT DATE: 20151009
